FAERS Safety Report 15868912 (Version 3)
Quarter: 2019Q1

REPORT INFORMATION
  Report Type: Report from Study
  Country: BR (occurrence: BR)
  Receive Date: 20190125
  Receipt Date: 20190215
  Transmission Date: 20190417
  Serious: Yes (Death, Hospitalization, Other)
  Sender: FDA-Public Use
  Company Number: BR-GLAXOSMITHKLINE-BR2019012264

PATIENT
  Age: 66 Year
  Sex: Male
  Weight: 77.7 kg

DRUGS (1)
  1. MEPOLIZUMAB [Suspect]
     Active Substance: MEPOLIZUMAB
     Indication: HYPEREOSINOPHILIC SYNDROME
     Dosage: 300 MG, CYC
     Route: 058
     Dates: start: 20181107

REACTIONS (1)
  - Hypereosinophilic syndrome [Fatal]

NARRATIVE: CASE EVENT DATE: 20190113
